FAERS Safety Report 14558993 (Version 1)
Quarter: 2018Q1

REPORT INFORMATION
  Report Type: Report from Study
  Country: ES (occurrence: ES)
  Receive Date: 20180221
  Receipt Date: 20180221
  Transmission Date: 20180509
  Serious: Yes (Hospitalization)
  Sender: FDA-Public Use
  Company Number: ES-TEVA-2018-ES-857678

PATIENT
  Age: 70 Year
  Sex: Female

DRUGS (6)
  1. LOSARTAN AND HYDROCHLOROTHIAZIDE [Suspect]
     Active Substance: HYDROCHLOROTHIAZIDE\LOSARTAN POTASSIUM
     Dosage: 1-0-0
     Route: 048
     Dates: start: 20150103, end: 20170404
  2. PRAVASTATINA  ALTER 10 MG COMPRIMIDOS EFG, 28 COMPRIMIDOS [Concomitant]
     Dosage: 0-0-1
     Route: 048
     Dates: start: 20150103
  3. REPAGLINIDA 1 [Concomitant]
     Dosage: 1-0-0
     Route: 048
     Dates: start: 20150103
  4. OMEPRAZOL 20 [Concomitant]
     Active Substance: OMEPRAZOLE
     Dosage: 1-0-0
     Route: 048
     Dates: start: 20150103
  5. ADIRO 100 [Concomitant]
     Active Substance: ASPIRIN
     Dosage: 0-1-0
     Route: 048
     Dates: start: 20150103
  6. METFORMINA ABEX 850 COMPRIMIDOS [Concomitant]
     Dosage: 1-0-1
     Route: 048
     Dates: start: 20150103

REACTIONS (1)
  - Inappropriate antidiuretic hormone secretion [Recovered/Resolved]

NARRATIVE: CASE EVENT DATE: 20170404
